FAERS Safety Report 5941507-5 (Version None)
Quarter: 2008Q4

REPORT INFORMATION
  Report Type: 
  Country: None (occurrence: None)
  Receive Date: 20081105
  Receipt Date: 20081029
  Transmission Date: 20090506
  Serious: Yes (Hospitalization)
  Sender: FDA-Public Use
  Company Number: AU-ABBOTT-08P-008-0477736-00

PATIENT
  Age: 28 Year
  Sex: Female

DRUGS (1)
  1. PEARL WHITE [Suspect]
     Indication: DRUG USE FOR UNKNOWN INDICATION
     Dates: start: 20080801, end: 20080901

REACTIONS (3)
  - BURNS THIRD DEGREE [None]
  - PARANOIA [None]
  - PSYCHOTIC DISORDER [None]
